FAERS Safety Report 10268753 (Version 1)
Quarter: 2014Q2

REPORT INFORMATION
  Report Type: Spontaneous
  Country: US (occurrence: US)
  Receive Date: 20140630
  Receipt Date: 20140630
  Transmission Date: 20141212
  Serious: No
  Sender: FDA-Public Use
  Company Number: US-PFIZER INC-2014178753

PATIENT
  Sex: Male

DRUGS (5)
  1. LYRICA [Suspect]
     Dosage: 75 MG, 2X/DAY
     Dates: start: 201404
  2. LYRICA [Suspect]
     Dosage: LESS THAN 50 MG, DAILY
     Dates: start: 2014
  3. LYRICA [Suspect]
     Dosage: UNK
  4. OXYCODEINE [Concomitant]
     Indication: PAIN
     Dosage: 10MG TABLETS UP TO 6 TIMES A DAY
  5. OXYCODEINE [Concomitant]
     Dosage: 10-20 MG A DAY

REACTIONS (5)
  - Feeling abnormal [Unknown]
  - Disturbance in attention [Unknown]
  - Confusional state [Unknown]
  - Agitation [Unknown]
  - Gait disturbance [Unknown]
